FAERS Safety Report 4483819-0 (Version None)
Quarter: 2004Q4

REPORT INFORMATION
  Report Type: 
  Country: None (occurrence: None)
  Receive Date: 20041025
  Receipt Date: 20041014
  Transmission Date: 20050328
  Serious: Yes (Hospitalization)
  Sender: FDA-Public Use
  Company Number: 200420287GDDC

PATIENT
  Age: 64 Year
  Sex: Female

DRUGS (1)
  1. DIETHYLPROPION HYDROCHLORIDE TAB [Suspect]
     Dosage: DOSE: 4-5 TABLETS PER DAY
     Route: 048
     Dates: start: 19970101, end: 20040801

REACTIONS (10)
  - DEPRESSION [None]
  - DRUG TOXICITY [None]
  - DRUG WITHDRAWAL SYNDROME [None]
  - MEDICATION ERROR [None]
  - NEUTROPHIL COUNT DECREASED [None]
  - NEUTROPHIL COUNT INCREASED [None]
  - REBOUND EFFECT [None]
  - VOMITING [None]
  - WHITE BLOOD CELL COUNT DECREASED [None]
  - WHITE BLOOD CELL COUNT INCREASED [None]
